FAERS Safety Report 5877253-6 (Version None)
Quarter: 2008Q3

REPORT INFORMATION
  Report Type: 
  Country: None (occurrence: None)
  Receive Date: 20080828
  Receipt Date: 20080815
  Transmission Date: 20090109
  Serious: Yes (Death, Hospitalization)
  Sender: FDA-Public Use
  Company Number: AEUSA200800171

PATIENT
  Age: 83 Year
  Sex: Female
  Weight: 68.0396 kg

DRUGS (17)
  1. GAMASTAN [Suspect]
     Indication: EXPOSURE TO COMMUNICABLE DISEASE
     Dosage: 1.4 ML;TOTAL;IM
     Route: 030
     Dates: start: 20080709, end: 20080709
  2. LIPITOR [Concomitant]
  3. LIDODERM [Concomitant]
  4. MULTI-VITAMINS [Concomitant]
  5. ACETAMINOPHEN [Concomitant]
  6. DETROL /01350201/ [Concomitant]
  7. AMLODIPINE [Concomitant]
  8. ARICEPT [Concomitant]
  9. CITALOPRAM HYDROBROMIDE [Concomitant]
  10. GABAPENTIN [Concomitant]
  11. CALCIUM /01303501/ [Concomitant]
  12. NEXIUM [Concomitant]
  13. KLOR-CON [Concomitant]
  14. PROMETHAZINE [Concomitant]
  15. LAXATIVES [Concomitant]
  16. VICODIN [Concomitant]
  17. TRAMADOL HCL [Concomitant]

REACTIONS (7)
  - ALTERED STATE OF CONSCIOUSNESS [None]
  - BETA HAEMOLYTIC STREPTOCOCCAL INFECTION [None]
  - CARDIAC FAILURE CONGESTIVE [None]
  - CHEST X-RAY ABNORMAL [None]
  - CULTURE URINE POSITIVE [None]
  - FLUID OVERLOAD [None]
  - MYOCARDIAL INFARCTION [None]
